FAERS Safety Report 20605617 (Version 2)
Quarter: 2022Q1

REPORT INFORMATION
  Report Type: Report from Study
  Country: US (occurrence: US)
  Receive Date: 20220317
  Receipt Date: 20220330
  Transmission Date: 20220423
  Serious: Yes (Death, Life-Threatening, Other)
  Sender: FDA-Public Use
  Company Number: US-GILEAD-2022-0573881

PATIENT
  Age: 63 Year
  Sex: Female

DRUGS (7)
  1. AMBRISENTAN [Suspect]
     Active Substance: AMBRISENTAN
     Indication: Pulmonary arterial hypertension
     Dosage: 10 MG, QD
     Route: 065
     Dates: start: 20161026, end: 202202
  2. METOPROLOL SUCCINATE [Concomitant]
     Active Substance: METOPROLOL SUCCINATE
     Dates: start: 20211022, end: 202202
  3. POTASSIUM CHLORATE [Concomitant]
     Active Substance: POTASSIUM CHLORATE
     Dates: start: 20220125, end: 202202
  4. WARFARIN [Concomitant]
     Active Substance: WARFARIN
     Dates: start: 20220125, end: 202202
  5. BUMETANIDE [Concomitant]
     Active Substance: BUMETANIDE
     Dates: start: 20220129, end: 202202
  6. DILTIAZEM [Concomitant]
     Active Substance: DILTIAZEM
     Dates: start: 20210719, end: 202202
  7. TADALAFIL [Concomitant]
     Active Substance: TADALAFIL
     Dates: end: 202202

REACTIONS (1)
  - Death [Fatal]

NARRATIVE: CASE EVENT DATE: 20220201
